FAERS Safety Report 4274005-8 (Version None)
Quarter: 2004Q1

REPORT INFORMATION
  Report Type: 
  Country: None (occurrence: None)
  Receive Date: 20040115
  Receipt Date: 20040106
  Transmission Date: 20041129
  Serious: Yes (Other)
  Sender: FDA-Public Use
  Company Number: 2004001449

PATIENT
  Age: 66 Year
  Sex: Male
  Weight: 55.7924 kg

DRUGS (9)
  1. ATORVASTATIN (ATORVASTATIN) [Suspect]
     Indication: BLOOD CHOLESTEROL
     Dosage: 10 MG (DAILY), ORAL
     Route: 048
     Dates: start: 20031117, end: 20031215
  2. BETAHISTINE [Concomitant]
  3. FUROSEMIDE [Concomitant]
  4. NIZATIDINE [Concomitant]
  5. DILTIAZEM [Concomitant]
  6. LISINOPRIL [Concomitant]
  7. BISOPROLOL FUMARATE [Concomitant]
  8. GLYCERYL TRINITRATE [Concomitant]
  9. ACETYLSALICYLIC ACID SRT [Concomitant]

REACTIONS (5)
  - CONDITION AGGRAVATED [None]
  - MENIERE'S DISEASE [None]
  - OTITIS EXTERNA [None]
  - VERTIGO [None]
  - VOMITING [None]
